FAERS Safety Report 7230850-8 (Version None)
Quarter: 2011Q1

REPORT INFORMATION
  Report Type: 
  Country: None (occurrence: None)
  Receive Date: 20110118
  Receipt Date: 20110103
  Transmission Date: 20110831
  Serious: Yes (Death, Congenital Anomaly, Other)
  Sender: FDA-Public Use
  Company Number: US-ROCHE-616044

PATIENT
  Age: 26 Year
  Sex: Female
  Weight: 52.2 kg

DRUGS (3)
  1. LISINOPRIL [Concomitant]
     Indication: HYPERTENSION
     Route: 048
     Dates: start: 20080318
  2. CELLCEPT [Suspect]
     Route: 048
     Dates: start: 20080110, end: 20081215
  3. PREDNISONE [Concomitant]
     Indication: SYSTEMIC LUPUS ERYTHEMATOSUS
     Route: 048
     Dates: start: 20080425

REACTIONS (8)
  - RENAL APLASIA [None]
  - PULMONARY HYPOPLASIA [None]
  - CONGENITAL CARDIOVASCULAR ANOMALY [None]
  - SCAPHOCEPHALY [None]
  - DRUG EXPOSURE DURING PREGNANCY [None]
  - ANOMALY OF EXTERNAL EAR CONGENITAL [None]
  - OLIGOHYDRAMNIOS [None]
  - CONGENITAL MUSCULOSKELETAL ANOMALY [None]
